FAERS Safety Report 17529154 (Version 1)
Quarter: 2020Q1

REPORT INFORMATION
  Report Type: Report from Study
  Country: CO (occurrence: CO)
  Receive Date: 20200312
  Receipt Date: 20200312
  Transmission Date: 20200409
  Serious: Yes (Other)
  Sender: FDA-Public Use
  Company Number: CO-ROCHE-2523598

PATIENT
  Sex: Female

DRUGS (2)
  1. XELODA [Suspect]
     Active Substance: CAPECITABINE
     Indication: PRODUCT USED FOR UNKNOWN INDICATION
     Dosage: PILLS
     Route: 048
  2. DIPYRONE [Concomitant]
     Active Substance: DIPYRONE

REACTIONS (5)
  - Malnutrition [Unknown]
  - Bronchospasm [Unknown]
  - Peripheral swelling [Unknown]
  - Deafness [Unknown]
  - Speech disorder [Unknown]
